FAERS Safety Report 6059325-9 (Version None)
Quarter: 2009Q1

REPORT INFORMATION
  Report Type: 
  Country: None (occurrence: None)
  Receive Date: 20090128
  Receipt Date: 20090119
  Transmission Date: 20090719
  Serious: Yes (Hospitalization)
  Sender: FDA-Public Use
  Company Number: 2008-04893

PATIENT
  Age: 62 Year
  Sex: Female
  Weight: 88 kg

DRUGS (10)
  1. VELCADE [Suspect]
     Indication: MULTIPLE MYELOMA
     Dosage: 2.4 MG, INTRAVENOUS
     Route: 042
  2. LASIX [Concomitant]
  3. MORPHINE SULFATE [Concomitant]
  4. LEVAQUIN [Concomitant]
  5. OMEPRAZOLE [Concomitant]
  6. ZOLPIDEM TARTRATE [Concomitant]
  7. VALTREX [Concomitant]
  8. METRONIDAZOLE [Concomitant]
  9. KAVEPENIN (PHENOXYMETHYLPENICILLIN POTASSIUM) [Concomitant]
  10. CLAFORAN [Concomitant]

REACTIONS (2)
  - HYPOTENSION [None]
  - PNEUMONIA [None]
